FAERS Safety Report 25663881 (Version 1)
Quarter: 2025Q3

REPORT INFORMATION
  Report Type: Spontaneous
  Country: EU (occurrence: EU)
  Receive Date: 20250811
  Receipt Date: 20250811
  Transmission Date: 20251020
  Serious: Yes (Other)
  Sender: HIKMA
  Company Number: EU-HIKMA PHARMACEUTICALS-IT-H14001-25-08974

PATIENT
  Sex: Female

DRUGS (2)
  1. CISPLATIN [Suspect]
     Active Substance: CISPLATIN
     Indication: Breast cancer
     Route: 065
  2. ETOPOSIDE [Suspect]
     Active Substance: ETOPOSIDE
     Indication: Breast cancer
     Route: 065

REACTIONS (1)
  - Disease progression [Unknown]
